FAERS Safety Report 5208161-1 (Version None)
Quarter: 2006Q4

REPORT INFORMATION
  Report Type: 
  Country: None (occurrence: None)
  Receive Date: 20061027
  Receipt Date: 20060221
  Transmission Date: 20070319
  Serious: Yes (Other)
  Sender: FDA-Public Use
  Company Number: HQWYE938823FEB06

PATIENT
  Sex: Female

DRUGS (8)
  1. PREMARIN [Suspect]
     Indication: OESTROGEN REPLACEMENT THERAPY
  2. CYCRIN [Suspect]
     Indication: HORMONE REPLACEMENT THERAPY
  3. ESTRADIOL [Suspect]
     Indication: HORMONE REPLACEMENT THERAPY
  4. ESTRIOL (ESTRIOL, ) [Suspect]
     Indication: HORMONE REPLACEMENT THERAPY
  5. ESTROGENIC SUBSTANCE [Suspect]
     Indication: OESTROGEN REPLACEMENT THERAPY
  6. PROGESTERONE [Suspect]
     Indication: HORMONE REPLACEMENT THERAPY
  7. PROGESTINE (PROGESTINE, ) [Suspect]
     Indication: HORMONE REPLACEMENT THERAPY
  8. PROVERA [Suspect]
     Indication: HORMONE REPLACEMENT THERAPY

REACTIONS (1)
  - BREAST CANCER [None]
